FAERS Safety Report 9840851 (Version 1)
Quarter: 2013Q4

REPORT INFORMATION
  Report Type: Spontaneous
  Country: US (occurrence: None)
  Receive Date: 20131212
  Receipt Date: 20131212
  Transmission Date: 20140711
  Serious: Yes (Hospitalization)
  Sender: FDA-Public Use
  Company Number: 20130111CINRY3841

PATIENT
  Age: 48 Year
  Sex: Female

DRUGS (8)
  1. CINRYZE [Suspect]
     Indication: HEREDITARY ANGIOEDEMA
     Dosage: 1000 UNIT, 1 IN 1 D
     Route: 042
     Dates: start: 20110719, end: 20130101
  2. CINRYZE [Suspect]
     Indication: PROPHYLAXIS
     Dosage: 1000 UNIT, 1 IN 1 D
     Route: 042
     Dates: start: 20110719, end: 20130101
  3. ATENOLOL [Concomitant]
  4. METFORMIN [Concomitant]
  5. PROZAC (FLUOXETINE HYDROCHLORIDE) [Concomitant]
  6. KALBITOR (ECALLANTIDE) [Concomitant]
  7. FIRAZYR (ICATIBANT ACETATE) [Concomitant]
  8. BERINERT (COMPLEMENT C1 ESTERASE INHIBITOR) [Concomitant]

REACTIONS (1)
  - Hereditary angioedema [None]
